FAERS Safety Report 7649637-7 (Version None)
Quarter: 2011Q3

REPORT INFORMATION
  Report Type: 
  Country: None (occurrence: None)
  Receive Date: 20110802
  Receipt Date: 20110722
  Transmission Date: 20111222
  Serious: No
  Sender: FDA-Public Use
  Company Number: US-PFIZER INC-2011155807

PATIENT
  Sex: Male

DRUGS (3)
  1. VFEND [Suspect]
     Indication: SURGERY
     Dosage: 200 MG, 2X/DAY
     Route: 048
     Dates: start: 20080812, end: 20080820
  2. SINGULAIR [Concomitant]
     Indication: HYPERSENSITIVITY
     Dosage: UNK
     Dates: start: 20080812
  3. RHINOCORT [Concomitant]
     Indication: HYPERSENSITIVITY
     Dosage: UNK
     Dates: start: 20080812

REACTIONS (1)
  - RASH [None]
